FAERS Safety Report 6372195-4 (Version None)
Quarter: 2009Q3

REPORT INFORMATION
  Report Type: 
  Country: None (occurrence: None)
  Receive Date: 20090924
  Receipt Date: 20070831
  Transmission Date: 20100115
  Serious: Yes (Hospitalization)
  Sender: FDA-Public Use
  Company Number: US-ASTRAZENECA-2007UW01941

PATIENT
  Age: 52 Year
  Sex: Female
  Weight: 106.1 kg

DRUGS (16)
  1. SEROQUEL [Suspect]
     Indication: BIPOLAR DISORDER
     Dosage: 100 MG 4 HS
     Route: 048
     Dates: start: 20010101
  2. SEROQUEL [Suspect]
     Route: 048
     Dates: start: 20060326, end: 20060701
  3. GEODON [Concomitant]
     Dates: start: 20060728
  4. HALDOL [Concomitant]
     Dates: start: 20060101, end: 20060101
  5. REGLAN [Concomitant]
     Indication: ABDOMINAL DISTENSION
     Route: 048
     Dates: start: 20010831
  6. PREVACID [Concomitant]
     Dates: start: 20011009
  7. CYMBALTA [Concomitant]
     Dosage: 30 MG - 60 MG
     Route: 048
     Dates: start: 20040101
  8. LITHIUM CARBONATE [Concomitant]
     Indication: BIPOLAR DISORDER
     Dates: start: 19960801
  9. LITHIUM CARBONATE [Concomitant]
     Dosage: 300 MG - 900 MG
     Route: 048
     Dates: start: 20010101
  10. XANAX [Concomitant]
     Dosage: 1 MG - 2MG
     Dates: start: 20011009
  11. PROTONIX [Concomitant]
     Dates: start: 20040721
  12. VICODIN [Concomitant]
     Indication: PAIN
     Dosage: 500 MG/5 MG TAB TID - 750 MG/7.5 MG
     Route: 048
     Dates: start: 20040227
  13. GLYBURIDE [Concomitant]
     Dosage: 2.5 MG - 10 MG
     Dates: start: 20060526
  14. PROZAC [Concomitant]
     Indication: BIPOLAR DISORDER
     Dates: start: 20011009
  15. LEXAPRO [Concomitant]
     Dates: start: 20040204
  16. GABITRIL [Concomitant]
     Dosage: THREE TIMES A DAY
     Dates: start: 20040721

REACTIONS (6)
  - CHOLECYSTECTOMY [None]
  - CHOLELITHIASIS [None]
  - CONSTIPATION [None]
  - DIABETES MELLITUS [None]
  - TYPE 2 DIABETES MELLITUS [None]
  - WEIGHT INCREASED [None]
